FAERS Safety Report 6674257-0 (Version None)
Quarter: 2010Q2

REPORT INFORMATION
  Report Type: 
  Country: None (occurrence: None)
  Receive Date: 20100409
  Receipt Date: 20100330
  Transmission Date: 20101027
  Serious: Yes (Hospitalization)
  Sender: FDA-Public Use
  Company Number: RU-JNJFOC-20100308813

PATIENT
  Age: 25 Year
  Sex: Male

DRUGS (8)
  1. INFLIXIMAB [Suspect]
     Indication: ANKYLOSING SPONDYLITIS
     Dosage: AT 2, 10, 6 AND 8 WEEKS
     Route: 042
  2. ANTI-TUBERCULOSIS DRUG (NOS) [Suspect]
     Indication: TUBERCULOSIS
  3. ISONIAZID [Suspect]
     Indication: TUBERCULOSIS
     Route: 042
  4. RIFAMPICIN [Suspect]
     Indication: TUBERCULOSIS
     Route: 042
  5. STREPTOMYCIN [Suspect]
     Indication: TUBERCULOSIS
     Route: 030
  6. AVELOX [Suspect]
     Indication: TUBERCULOSIS
     Route: 042
  7. ETHAMBUTOL HYDROCHLORIDE [Suspect]
     Indication: TUBERCULOSIS
     Route: 042
  8. OFLOXACIN [Suspect]
     Indication: TUBERCULOSIS
     Route: 042

REACTIONS (19)
  - ABDOMINAL ADHESIONS [None]
  - CACHEXIA [None]
  - CARDIOPULMONARY FAILURE [None]
  - COLITIS ULCERATIVE [None]
  - DECREASED APPETITE [None]
  - DISSEMINATED TUBERCULOSIS [None]
  - ENTEROCUTANEOUS FISTULA [None]
  - FISTULA DISCHARGE [None]
  - GASTROINTESTINAL INFECTION [None]
  - HEPATITIS [None]
  - ILEAL PERFORATION [None]
  - INTESTINAL OBSTRUCTION [None]
  - MULTI-ORGAN FAILURE [None]
  - PERITONEAL TUBERCULOSIS [None]
  - PERITONITIS [None]
  - POISONING [None]
  - PULMONARY TUBERCULOSIS [None]
  - TUBERCULOSIS [None]
  - TUBERCULOSIS GASTROINTESTINAL [None]
